FAERS Safety Report 7400342-1 (Version None)
Quarter: 2011Q2

REPORT INFORMATION
  Report Type: 
  Country: None (occurrence: None)
  Receive Date: 20110407
  Receipt Date: 20110325
  Transmission Date: 20111010
  Serious: Yes (Death, Hospitalization)
  Sender: FDA-Public Use
  Company Number: PL-CELGENEUS-129-50794-10121570

PATIENT
  Sex: Male

DRUGS (7)
  1. ACETYLID [Concomitant]
     Route: 065
  2. ARANESP [Concomitant]
     Route: 065
  3. VIDAZA [Suspect]
     Dosage: 150 MILLIGRAM
     Route: 058
     Dates: start: 20100128, end: 20101108
  4. CORDARONE [Concomitant]
     Route: 065
  5. BISOCARD [Concomitant]
     Route: 065
  6. TRITACE [Concomitant]
     Route: 065
  7. FUROSEMIDE [Concomitant]
     Route: 065

REACTIONS (2)
  - MYELODYSPLASTIC SYNDROME [None]
  - ANAEMIA [None]
